FAERS Safety Report 7303496-0 (Version None)
Quarter: 2011Q1

REPORT INFORMATION
  Report Type: 
  Country: None (occurrence: None)
  Receive Date: 20110221
  Receipt Date: 20110214
  Transmission Date: 20110831
  Serious: Yes (Death)
  Sender: FDA-Public Use
  Company Number: PHHY2010CA84693

PATIENT
  Sex: Female

DRUGS (6)
  1. ZOCOR [Concomitant]
  2. VITAMIN D [Concomitant]
     Dosage: 800 IU, UNK
  3. ACTONEL [Suspect]
     Indication: OSTEOPOROSIS
     Dosage: 35 MG, WEEKLY
     Route: 048
     Dates: start: 20050511
  4. PANTOLOC [Concomitant]
  5. MONOCOR [Concomitant]
  6. CALCIUM [Concomitant]
     Dosage: 1000 MG, UNK

REACTIONS (1)
  - DEATH [None]
